FAERS Safety Report 24901125 (Version 1)
Quarter: 2025Q1

REPORT INFORMATION
  Report Type: Spontaneous
  Country: US (occurrence: US)
  Receive Date: 20250129
  Receipt Date: 20250129
  Transmission Date: 20250408
  Serious: Yes (Life-Threatening, Hospitalization, Other)
  Sender: AMGEN
  Company Number: US-AMGEN-USASP2025013543

PATIENT
  Age: 81 Year
  Sex: Male

DRUGS (4)
  1. PREDNISONE [Suspect]
     Active Substance: PREDNISONE
     Indication: Rheumatoid arthritis
     Route: 065
  2. THIAMINE [Concomitant]
     Active Substance: THIAMINE
     Dosage: 200 MILLIGRAM, QD
     Route: 040
  3. VASOPRESSIN [Concomitant]
     Active Substance: VASOPRESSIN
     Route: 065
  4. NOREPINEPHRINE [Concomitant]
     Active Substance: NOREPINEPHRINE
     Route: 065

REACTIONS (6)
  - Vitamin B1 deficiency [Unknown]
  - Gastrointestinal disorder [Unknown]
  - Atrial fibrillation [Unknown]
  - Abdominal pain [Unknown]
  - Nausea [Unknown]
  - Asthenia [Unknown]
